FAERS Safety Report 18686840 (Version 2)
Quarter: 2021Q1

REPORT INFORMATION
  Report Type: Report from Study
  Country: US (occurrence: US)
  Receive Date: 20201231
  Receipt Date: 20210129
  Transmission Date: 20210419
  Serious: No
  Sender: FDA-Public Use
  Company Number: US-AMGEN-USASP2020211991

PATIENT
  Age: 66 Year
  Sex: Male

DRUGS (1)
  1. REPATHA [Suspect]
     Active Substance: EVOLOCUMAB
     Indication: HYPERCHOLESTEROLAEMIA
     Dosage: 140 MILLIGRAM, Q2WK
     Route: 065
     Dates: start: 202009

REACTIONS (5)
  - Dysphonia [Unknown]
  - Splint application [Unknown]
  - Fall [Unknown]
  - Injection site injury [Unknown]
  - Injection site pain [Unknown]

NARRATIVE: CASE EVENT DATE: 202012
